FAERS Safety Report 18769888 (Version 1)
Quarter: 2021Q1

REPORT INFORMATION
  Report Type: Spontaneous
  Country: AT (occurrence: AT)
  Receive Date: 20210121
  Receipt Date: 20210121
  Transmission Date: 20210419
  Serious: Yes (Other)
  Sender: FDA-Public Use
  Company Number: AT-BAYER-2021-029120

PATIENT
  Age: 29 Year
  Sex: Female

DRUGS (3)
  1. LIDAPRIM [SULFAMETROLE;TRIMETHOPRIM] [Concomitant]
     Active Substance: SULFAMETROLE\TRIMETHOPRIM
  2. ULTRAVIST [Suspect]
     Active Substance: IOPROMIDE
     Dosage: ACCORDING TO LABEL
     Dates: start: 20200201, end: 20200201
  3. DOXYBENE [Concomitant]
     Active Substance: DOXYCYCLINE

REACTIONS (5)
  - Sneezing [Recovered/Resolved]
  - Cough [Recovered/Resolved]
  - Nasal congestion [Recovered/Resolved]
  - Type I hypersensitivity [Recovered/Resolved]
  - Sinus congestion [Recovered/Resolved]

NARRATIVE: CASE EVENT DATE: 20200201
